FAERS Safety Report 15583609 (Version 1)
Quarter: 2018Q4

REPORT INFORMATION
  Report Type: Spontaneous
  Country: US (occurrence: US)
  Receive Date: 20181031
  Receipt Date: 20181031
  Transmission Date: 20190205
  Serious: Yes (Hospitalization)
  Sender: FDA-Public Use
  Company Number: None

PATIENT
  Age: 21 Year
  Sex: Female
  Weight: 57.2 kg

DRUGS (1)
  1. DDAVP GENERIC [Suspect]
     Active Substance: DESMOPRESSIN ACETATE
     Indication: DIABETES INSIPIDUS
     Route: 048

REACTIONS (4)
  - Dehydration [None]
  - Hyponatraemia [None]
  - Drug ineffective [None]
  - Seizure [None]
